FAERS Safety Report 17911614 (Version 1)
Quarter: 2020Q2

REPORT INFORMATION
  Report Type: Spontaneous
  Country: US (occurrence: US)
  Receive Date: 20200617
  Receipt Date: 20200617
  Transmission Date: 20200714
  Serious: Yes (Other)
  Sender: FDA-Public Use
  Company Number: None

PATIENT
  Age: 60 Year
  Sex: Female
  Weight: 70.31 kg

DRUGS (11)
  1. NEURONTIN [Suspect]
     Active Substance: GABAPENTIN
     Indication: COMPLEX REGIONAL PAIN SYNDROME
     Dates: start: 1990
  2. METHOCARBAMOL. [Concomitant]
     Active Substance: METHOCARBAMOL
  3. PROXICIL [Concomitant]
  4. THYROID MEDS [Concomitant]
  5. QUETIQPINE [Suspect]
     Active Substance: QUETIAPINE
  6. VALIUM 2 MG [Concomitant]
  7. OMEPRAZOLE. [Concomitant]
     Active Substance: OMEPRAZOLE
  8. GABAPENTIN. [Suspect]
     Active Substance: GABAPENTIN
  9. OXYCODONE [Concomitant]
     Active Substance: OXYCODONE
  10. VICKS DAYQUIL [Concomitant]
     Active Substance: DEXTROMETHORPHAN HYDROBROMIDE\GUAIFENESIN
  11. SIMVASTATIN. [Concomitant]
     Active Substance: SIMVASTATIN

REACTIONS (3)
  - Therapy cessation [None]
  - Blindness transient [None]
  - Vision blurred [None]
